FAERS Safety Report 6496222-9 (Version None)
Quarter: 2009Q4

REPORT INFORMATION
  Report Type: 
  Country: None (occurrence: None)
  Receive Date: 20091214
  Receipt Date: 20091027
  Transmission Date: 20100525
  Serious: No
  Sender: FDA-Public Use
  Company Number: US-BRISTOL-MYERS SQUIBB COMPANY-14832562

PATIENT
  Age: 51 Year
  Sex: Male

DRUGS (2)
  1. ABILIFY [Suspect]
     Indication: MAJOR DEPRESSION
     Dosage: 2 MG TAKEN FOR 1 MONTH
  2. ABILIFY [Suspect]
     Indication: PSYCHOTIC DISORDER
     Dosage: 2 MG TAKEN FOR 1 MONTH

REACTIONS (2)
  - DEPRESSION [None]
  - SWOLLEN TONGUE [None]
